FAERS Safety Report 23963537 (Version 1)
Quarter: 2024Q2

REPORT INFORMATION
  Report Type: Spontaneous
  Country: GB (occurrence: GB)
  Receive Date: 20240611
  Receipt Date: 20240611
  Transmission Date: 20240716
  Serious: Yes (Other)
  Sender: FDA-Public Use
  Company Number: GB-MHRA-TPP20995573C7890021YC1716562606654

PATIENT
  Age: 70 Year
  Sex: Female
  Weight: 82 kg

DRUGS (14)
  1. SPIRONOLACTONE [Suspect]
     Active Substance: SPIRONOLACTONE
     Indication: Ill-defined disorder
     Dosage: DOSAGE: 25 /MG IN THE MORNING,
     Route: 065
     Dates: start: 20240405
  2. ALLOPURINOL [Concomitant]
     Active Substance: ALLOPURINOL
     Indication: Ill-defined disorder
     Dosage: IN THE EVENING
     Dates: start: 20240115
  3. CETRABEN [Concomitant]
     Indication: Ill-defined disorder
     Dosage: USE AS DIRECTED
     Dates: start: 20240424
  4. BECLOMETHASONE\FORMOTEROL [Concomitant]
     Active Substance: BECLOMETHASONE\FORMOTEROL
     Indication: Ill-defined disorder
     Dosage: 1-2 PUFFS TWICE A DAY
     Route: 055
     Dates: start: 20240115
  5. SIMVASTATIN [Concomitant]
     Active Substance: SIMVASTATIN
     Indication: Ill-defined disorder
     Dosage: AT NIGHT
     Dates: start: 20240115
  6. BISOPROLOL [Concomitant]
     Active Substance: BISOPROLOL\BISOPROLOL FUMARATE
     Indication: Ill-defined disorder
     Dosage: AS PER CARDIOLOGY
     Dates: start: 20240115
  7. AMDINOCILLIN PIVOXIL [Concomitant]
     Active Substance: AMDINOCILLIN PIVOXIL
     Indication: Ill-defined disorder
     Dosage: TAKE 2 NOW THEN 1 THREE TIMES A DAY,
     Dates: start: 20240514, end: 20240517
  8. ALBUTEROL [Concomitant]
     Active Substance: ALBUTEROL
     Indication: Ill-defined disorder
     Dosage: PUFFS , AS REQUIRED
     Route: 055
     Dates: start: 20240115
  9. BUMETANIDE [Concomitant]
     Active Substance: BUMETANIDE
     Indication: Ill-defined disorder
     Dosage: TO TAKE 4MG ONE DAY AND THEN 3MG THE NEXT DAY,C,
     Dates: start: 20240115, end: 20240524
  10. DAPAGLIFLOZIN [Concomitant]
     Active Substance: DAPAGLIFLOZIN
     Indication: Ill-defined disorder
     Dates: start: 20240115, end: 20240524
  11. LORATADINE [Concomitant]
     Active Substance: LORATADINE
     Indication: Ill-defined disorder
     Dates: start: 20240115
  12. AMIODARONE [Concomitant]
     Active Substance: AMIODARONE
     Indication: Ill-defined disorder
     Dates: start: 20240405
  13. ENTRESTO [Concomitant]
     Active Substance: SACUBITRIL\VALSARTAN
     Indication: Ill-defined disorder
     Dosage: USE AS DIRECTED,
     Dates: start: 20240115
  14. RIVAROXABAN [Concomitant]
     Active Substance: RIVAROXABAN
     Indication: Ill-defined disorder
     Dates: start: 20240115

REACTIONS (1)
  - Acute kidney injury [Recovering/Resolving]

NARRATIVE: CASE EVENT DATE: 20240524
